FAERS Safety Report 9863850 (Version 4)
Quarter: 2014Q1

REPORT INFORMATION
  Report Type: Spontaneous
  Country: CA (occurrence: CA)
  Receive Date: 20140203
  Receipt Date: 20140321
  Transmission Date: 20141002
  Serious: Yes (Other)
  Sender: FDA-Public Use
  Company Number: CA-BAXTER-2013BAX047980

PATIENT
  Age: 66 Year
  Sex: Male
  Weight: 63.9 kg

DRUGS (20)
  1. GAMMAGARD LIQUID -IMMUNE GLOBULIN INTRAVENOUS (HUMAN), [IGIV] 10% [Suspect]
     Indication: PLASMA CELL MYELOMA
     Route: 042
     Dates: start: 20131121, end: 20131121
  2. GAMMAGARD LIQUID -IMMUNE GLOBULIN INTRAVENOUS (HUMAN), [IGIV] 10% [Suspect]
     Indication: OFF LABEL USE
     Route: 065
     Dates: start: 20130408
  3. AMLODIPINE [Concomitant]
     Indication: PRODUCT USED FOR UNKNOWN INDICATION
  4. APO-METOPROLOL [Concomitant]
     Indication: PRODUCT USED FOR UNKNOWN INDICATION
  5. ATORVASTATIN [Concomitant]
     Indication: PRODUCT USED FOR UNKNOWN INDICATION
  6. IRBESARTAN [Concomitant]
     Indication: PRODUCT USED FOR UNKNOWN INDICATION
  7. JAMP-K20 [Concomitant]
     Indication: PRODUCT USED FOR UNKNOWN INDICATION
  8. MAGLUCATE [Concomitant]
     Indication: PRODUCT USED FOR UNKNOWN INDICATION
  9. OMEPRAZOLE [Concomitant]
     Indication: PRODUCT USED FOR UNKNOWN INDICATION
  10. PREGABALIN [Concomitant]
     Indication: PRODUCT USED FOR UNKNOWN INDICATION
  11. PREGABALIN [Concomitant]
  12. ASA [Concomitant]
     Indication: PRODUCT USED FOR UNKNOWN INDICATION
  13. PRO CAL D [Concomitant]
     Indication: PRODUCT USED FOR UNKNOWN INDICATION
  14. PRO METFORMIN [Concomitant]
     Indication: PRODUCT USED FOR UNKNOWN INDICATION
  15. SYNTHROID [Concomitant]
     Indication: PRODUCT USED FOR UNKNOWN INDICATION
  16. PMS-LOPERAMIDE [Concomitant]
     Indication: PRODUCT USED FOR UNKNOWN INDICATION
  17. PROTRIN DF [Concomitant]
     Indication: PRODUCT USED FOR UNKNOWN INDICATION
     Dosage: 160-800 MILLIGRAMS
  18. DEXAMETHASONE [Concomitant]
     Indication: PRODUCT USED FOR UNKNOWN INDICATION
  19. PREDNISONE [Concomitant]
     Indication: PRODUCT USED FOR UNKNOWN INDICATION
     Dosage: EXCEPT ON DEXAMETHASONE DAY
  20. MAGNESIUM [Concomitant]
     Indication: PRODUCT USED FOR UNKNOWN INDICATION
     Dosage: BOLUS

REACTIONS (9)
  - Infection [Unknown]
  - Body temperature increased [Recovered/Resolved]
  - Chills [Recovered/Resolved]
  - Febrile nonhaemolytic transfusion reaction [Recovered/Resolved]
  - Hypotension [Recovered/Resolved]
  - Respiratory distress [Unknown]
  - Asthenia [Unknown]
  - Anaemia [Unknown]
  - Pulmonary function test decreased [Unknown]
